FAERS Safety Report 18262503 (Version 1)
Quarter: 2020Q3

REPORT INFORMATION
  Report Type: Spontaneous
  Country: US (occurrence: US)
  Receive Date: 20200913
  Receipt Date: 20200913
  Transmission Date: 20201103
  Serious: Yes (Hospitalization, Disabling)
  Sender: FDA-Public Use
  Company Number: None

PATIENT
  Age: 43 Year
  Sex: Male
  Weight: 90 kg

DRUGS (7)
  1. MINOCYCLINE [Suspect]
     Active Substance: MINOCYCLINE HYDROCHLORIDE
     Indication: BURNING SENSATION
     Dosage: ?          QUANTITY:1 CAPSULE(S);?
     Route: 048
     Dates: start: 20200830, end: 20200831
  2. MINOCYCLINE [Suspect]
     Active Substance: MINOCYCLINE HYDROCHLORIDE
     Indication: PARAESTHESIA
     Dosage: ?          QUANTITY:1 CAPSULE(S);?
     Route: 048
     Dates: start: 20200830, end: 20200831
  3. AMLODIPINE BESYLATE. [Concomitant]
     Active Substance: AMLODIPINE BESYLATE
  4. MULTIVITAMIN DAILY [Concomitant]
  5. LISINOPRIL HCTZ [Concomitant]
     Active Substance: HYDROCHLOROTHIAZIDE\LISINOPRIL
  6. ADVAIR HFA [Concomitant]
     Active Substance: FLUTICASONE PROPIONATE\SALMETEROL XINAFOATE
  7. OMEPRAZOLE DR 40 MG CAPSULE [Suspect]
     Active Substance: OMEPRAZOLE
     Indication: REFLUX LARYNGITIS
     Dosage: ?          QUANTITY:1 CAPSULE(S);?
     Route: 048
     Dates: start: 20200825, end: 20200903

REACTIONS (11)
  - Burning sensation [None]
  - Hypophagia [None]
  - Blood bilirubin increased [None]
  - Paraesthesia [None]
  - Nausea [None]
  - Blood potassium decreased [None]
  - Blood sodium decreased [None]
  - Blood chloride decreased [None]
  - Paranasal sinus discomfort [None]
  - Sinusitis [None]
  - Abdominal discomfort [None]

NARRATIVE: CASE EVENT DATE: 20200905
